FAERS Safety Report 23821002 (Version 2)
Quarter: 2024Q2

REPORT INFORMATION
  Report Type: Report from Study
  Country: US (occurrence: US)
  Receive Date: 20240506
  Receipt Date: 20240508
  Transmission Date: 20240716
  Serious: Yes (Death, Other)
  Sender: FDA-Public Use
  Company Number: US-ABBVIE-5745607

PATIENT
  Age: 92 Year
  Sex: Female

DRUGS (1)
  1. SYNTHROID [Suspect]
     Active Substance: LEVOTHYROXINE SODIUM
     Indication: Hypothyroidism
     Dosage: FORM STRENGTH: 112 MICROGRAM
     Route: 048

REACTIONS (4)
  - Cardiac disorder [Fatal]
  - Cerebrovascular accident [Unknown]
  - Gait inability [Unknown]
  - Lung disorder [Fatal]

NARRATIVE: CASE EVENT DATE: 20240410
